FAERS Safety Report 9349997 (Version 2)
Quarter: 2013Q2

REPORT INFORMATION
  Report Type: Spontaneous
  Country: CL (occurrence: CL)
  Receive Date: 20130614
  Receipt Date: 20130619
  Transmission Date: 20140414
  Serious: Yes (Other)
  Sender: FDA-Public Use
  Company Number: PHHY2013CL060259

PATIENT
  Age: 86 Year
  Sex: Female
  Weight: 60 kg

DRUGS (7)
  1. ACLASTA [Suspect]
     Indication: OSTEOPOROSIS
     Dosage: 5 MG, UNK
     Route: 042
     Dates: start: 20130610
  2. ASPIRIN [Concomitant]
     Dosage: 80 MG, QD
     Route: 048
  3. PRIMIDONA [Concomitant]
     Indication: ESSENTIAL TREMOR
     Dosage: 50 MG, TID
     Route: 048
     Dates: start: 20120102
  4. CALCIUM [Concomitant]
     Indication: OSTEOPOROSIS
     Dosage: 1000 MG, QD
     Route: 048
  5. TRAMAL [Concomitant]
     Indication: POST-TRAUMATIC PAIN
     Dosage: 12 DRP, TID
     Route: 048
     Dates: start: 20130529
  6. VITAMIN C [Concomitant]
     Dosage: 1000 MG, UNK
     Route: 048
  7. PARACETAMOL [Concomitant]
     Indication: POST-TRAUMATIC PAIN
     Dosage: 1000 MG, Q12H
     Route: 048
     Dates: start: 20130529

REACTIONS (6)
  - Hypertensive crisis [Recovered/Resolved]
  - Headache [Recovered/Resolved]
  - Blood pressure increased [Unknown]
  - Vasoconstriction [Recovered/Resolved]
  - Nausea [Recovered/Resolved]
  - Vomiting [Recovered/Resolved]
